FAERS Safety Report 19855817 (Version 1)
Quarter: 2021Q3

REPORT INFORMATION
  Report Type: Spontaneous
  Country: GB (occurrence: GB)
  Receive Date: 20210920
  Receipt Date: 20210920
  Transmission Date: 20211014
  Serious: Yes (Death)
  Sender: FDA-Public Use
  Company Number: GB-ROCHE-2907363

PATIENT
  Age: 58 Year
  Sex: Male

DRUGS (7)
  1. OCREVUS [Suspect]
     Active Substance: OCRELIZUMAB
     Route: 065
  2. CLADRIBINE. [Concomitant]
     Active Substance: CLADRIBINE
  3. DMF [Concomitant]
     Active Substance: DIMETHYL FUMARATE
  4. ASTRAZENECA COVID?19 VACCINE [Concomitant]
     Active Substance: AZD-1222
     Dates: start: 20210308
  5. OCREVUS [Suspect]
     Active Substance: OCRELIZUMAB
     Indication: RELAPSING-REMITTING MULTIPLE SCLEROSIS
     Route: 065
  6. CLADRIBINE. [Concomitant]
     Active Substance: CLADRIBINE
  7. ASTRAZENECA COVID?19 VACCINE [Concomitant]
     Active Substance: AZD-1222
     Dates: start: 20210208

REACTIONS (2)
  - COVID-19 pneumonia [Fatal]
  - Lymphopenia [Fatal]
